FAERS Safety Report 9774424 (Version 1)
Quarter: 2013Q4

REPORT INFORMATION
  Report Type: Spontaneous
  Country: US (occurrence: None)
  Receive Date: 20131219
  Receipt Date: 20131219
  Transmission Date: 20140711
  Serious: Yes (Hospitalization)
  Sender: FDA-Public Use
  Company Number: None

PATIENT
  Sex: Male

DRUGS (1)
  1. ZYTIGA [Suspect]
     Indication: PROSTATE CANCER
     Dosage: 2 WEEKS AGO
     Route: 048
     Dates: start: 20130201

REACTIONS (4)
  - Skin exfoliation [None]
  - Muscular weakness [None]
  - Oral infection [None]
  - Tooth loss [None]
